FAERS Safety Report 4556564-0 (Version None)
Quarter: 2005Q1

REPORT INFORMATION
  Report Type: 
  Country: None (occurrence: None)
  Receive Date: 20050118
  Receipt Date: 20050107
  Transmission Date: 20050727
  Serious: Yes (Death, Other)
  Sender: FDA-Public Use
  Company Number: USA-2005-0018259

PATIENT
  Sex: Male

DRUGS (1)
  1. OXYCONTIN [Suspect]
     Indication: PAIN
     Dosage: 20 MG, Q12H, UNK
     Route: 065

REACTIONS (4)
  - COMPLETED SUICIDE [None]
  - DEPRESSION [None]
  - DRUG ABUSER [None]
  - GUN SHOT WOUND [None]
